FAERS Safety Report 20636844 (Version 1)
Quarter: 2022Q1

REPORT INFORMATION
  Report Type: Spontaneous
  Country: US (occurrence: None)
  Receive Date: 20220324
  Receipt Date: 20220324
  Transmission Date: 20220424
  Serious: No
  Sender: FDA-Public Use
  Company Number: None

PATIENT
  Age: 45 Year
  Sex: Female
  Weight: 86.4 kg

DRUGS (1)
  1. LUPRON DEPOT [Suspect]
     Active Substance: LEUPROLIDE ACETATE
     Indication: Uterine leiomyoma
     Dosage: OTHER FREQUENCY : EVERY 3 MONTHS;?
     Route: 030

REACTIONS (5)
  - Hot flush [None]
  - Headache [None]
  - Pain [None]
  - Blood pressure increased [None]
  - Insomnia [None]

NARRATIVE: CASE EVENT DATE: 20211209
